FAERS Safety Report 23895841 (Version 10)
Quarter: 2024Q3

REPORT INFORMATION
  Report Type: Report from Study
  Country: US (occurrence: US)
  Receive Date: 20240524
  Receipt Date: 20240911
  Transmission Date: 20241017
  Serious: Yes (Hospitalization, Other)
  Sender: AUROBINDO
  Company Number: US-AUROBINDO-AUR-APL-2024-025259

PATIENT
  Age: 59 Year
  Sex: Male
  Weight: 99.2 kg

DRUGS (66)
  1. BELEODAQ [Suspect]
     Active Substance: BELINOSTAT
     Indication: Peripheral T-cell lymphoma unspecified stage IV
     Dosage: UNK
     Route: 065
  2. CYCLOPHOSPHAMIDE [Suspect]
     Active Substance: CYCLOPHOSPHAMIDE
     Indication: Peripheral T-cell lymphoma unspecified stage IV
     Dosage: 750 MILLIGRAM/SQ. METER
     Route: 042
     Dates: start: 20240401, end: 20240401
  3. CYCLOPHOSPHAMIDE [Suspect]
     Active Substance: CYCLOPHOSPHAMIDE
     Dosage: 750 MILLIGRAM/SQ. METER
     Route: 042
     Dates: start: 20240424
  4. CYCLOPHOSPHAMIDE [Suspect]
     Active Substance: CYCLOPHOSPHAMIDE
     Dosage: 750 MILLIGRAM/SQ. METER
     Route: 042
     Dates: start: 20240424, end: 20240424
  5. CYCLOPHOSPHAMIDE [Suspect]
     Active Substance: CYCLOPHOSPHAMIDE
     Dosage: 750 MILLIGRAM/SQ. METER
     Route: 042
     Dates: start: 20240517, end: 20240517
  6. CYCLOPHOSPHAMIDE [Suspect]
     Active Substance: CYCLOPHOSPHAMIDE
     Dosage: 750 MILLIGRAM/SQ. METER
     Route: 042
     Dates: start: 20240605, end: 20240605
  7. CYCLOPHOSPHAMIDE [Suspect]
     Active Substance: CYCLOPHOSPHAMIDE
     Dosage: 750 MILLIGRAM/SQ. METER
     Route: 065
     Dates: start: 20240626, end: 20240626
  8. PREDNISONE [Suspect]
     Active Substance: PREDNISONE
     Indication: Peripheral T-cell lymphoma unspecified stage IV
     Dosage: 100 MILLIGRAM
     Route: 065
     Dates: start: 20240401, end: 20240405
  9. PREDNISONE [Suspect]
     Active Substance: PREDNISONE
     Dosage: 100 MILLIGRAM
     Route: 065
     Dates: start: 20240402
  10. PREDNISONE [Suspect]
     Active Substance: PREDNISONE
     Dosage: 100 MILLIGRAM
     Route: 065
     Dates: start: 20240403
  11. PREDNISONE [Suspect]
     Active Substance: PREDNISONE
     Dosage: 100 MILLIGRAM
     Route: 065
     Dates: start: 20240404
  12. PREDNISONE [Suspect]
     Active Substance: PREDNISONE
     Dosage: 100 MILLIGRAM
     Route: 065
     Dates: start: 20240405
  13. PREDNISONE [Suspect]
     Active Substance: PREDNISONE
     Dosage: 100 MILLIGRAM
     Route: 048
     Dates: start: 20240424, end: 20240428
  14. PREDNISONE [Suspect]
     Active Substance: PREDNISONE
     Dosage: 100 MILLIGRAM
     Route: 048
     Dates: start: 20240424
  15. PREDNISONE [Suspect]
     Active Substance: PREDNISONE
     Dosage: 100 MILLIGRAM
     Route: 048
     Dates: start: 20240425
  16. PREDNISONE [Suspect]
     Active Substance: PREDNISONE
     Dosage: 100 MILLIGRAM
     Route: 048
     Dates: start: 20240426
  17. PREDNISONE [Suspect]
     Active Substance: PREDNISONE
     Dosage: 100 MILLIGRAM
     Route: 048
     Dates: start: 20240427
  18. PREDNISONE [Suspect]
     Active Substance: PREDNISONE
     Dosage: 100 MILLIGRAM
     Route: 048
     Dates: start: 20240428
  19. PREDNISONE [Suspect]
     Active Substance: PREDNISONE
     Dosage: 100 MILLIGRAM
     Route: 048
     Dates: start: 20240517
  20. PREDNISONE [Suspect]
     Active Substance: PREDNISONE
     Dosage: 100 MILLIGRAM
     Route: 048
     Dates: start: 20240518
  21. PREDNISONE [Suspect]
     Active Substance: PREDNISONE
     Dosage: 100 MILLIGRAM
     Route: 048
     Dates: start: 20240519
  22. PREDNISONE [Suspect]
     Active Substance: PREDNISONE
     Dosage: 100 MILLIGRAM
     Route: 048
     Dates: start: 20240520
  23. PREDNISONE [Suspect]
     Active Substance: PREDNISONE
     Dosage: 100 MILLIGRAM
     Route: 048
     Dates: start: 20240521
  24. PREDNISONE [Suspect]
     Active Substance: PREDNISONE
     Dosage: 100 MILLIGRAM
     Route: 048
     Dates: start: 20240605
  25. PREDNISONE [Suspect]
     Active Substance: PREDNISONE
     Dosage: 100 MILLIGRAM
     Route: 065
     Dates: start: 20240606
  26. PREDNISONE [Suspect]
     Active Substance: PREDNISONE
     Dosage: 100 MILLIGRAM
     Route: 065
     Dates: start: 20240607
  27. PREDNISONE [Suspect]
     Active Substance: PREDNISONE
     Dosage: 100 MILLIGRAM
     Route: 065
     Dates: start: 20240608
  28. PREDNISONE [Suspect]
     Active Substance: PREDNISONE
     Dosage: 100 MILLIGRAM
     Route: 065
     Dates: start: 20240609
  29. PREDNISONE [Suspect]
     Active Substance: PREDNISONE
     Dosage: 100 MILLIGRAM
     Route: 065
     Dates: start: 20240626
  30. PREDNISONE [Suspect]
     Active Substance: PREDNISONE
     Dosage: 100 MILLIGRAM
     Route: 065
     Dates: start: 20240627
  31. PREDNISONE [Suspect]
     Active Substance: PREDNISONE
     Dosage: 100 MILLIGRAM
     Route: 065
     Dates: start: 20240628
  32. PREDNISONE [Suspect]
     Active Substance: PREDNISONE
     Dosage: 100 MILLIGRAM
     Route: 065
     Dates: start: 20240629
  33. PREDNISONE [Suspect]
     Active Substance: PREDNISONE
     Dosage: 100 MILLIGRAM
     Route: 065
     Dates: start: 20240630
  34. EPIRUBICIN [Suspect]
     Active Substance: EPIRUBICIN
     Indication: Peripheral T-cell lymphoma unspecified stage IV
     Dosage: 50 MILLIGRAM/SQ. METER
     Route: 042
     Dates: start: 20240401, end: 20240401
  35. EPIRUBICIN [Suspect]
     Active Substance: EPIRUBICIN
     Dosage: 50 MILLIGRAM/SQ. METER
     Route: 042
     Dates: start: 20240424
  36. EPIRUBICIN [Suspect]
     Active Substance: EPIRUBICIN
     Dosage: 50 MILLIGRAM/SQ. METER
     Route: 042
     Dates: start: 20240424, end: 20240424
  37. EPIRUBICIN [Suspect]
     Active Substance: EPIRUBICIN
     Dosage: 50 MILLIGRAM/SQ. METER
     Route: 042
     Dates: start: 20240517, end: 20240517
  38. EPIRUBICIN [Suspect]
     Active Substance: EPIRUBICIN
     Dosage: 50 MILLIGRAM/SQ. METER
     Route: 042
     Dates: start: 20240605, end: 20240605
  39. EPIRUBICIN [Suspect]
     Active Substance: EPIRUBICIN
     Dosage: 50 MILLIGRAM/SQ. METER
     Route: 065
     Dates: start: 20240626, end: 20240626
  40. ONCOVIN [Suspect]
     Active Substance: VINCRISTINE SULFATE
     Indication: Peripheral T-cell lymphoma unspecified stage IV
     Dosage: 0.9 MILLIGRAM/SQ. METER
     Route: 042
     Dates: start: 20240401, end: 20240401
  41. ONCOVIN [Suspect]
     Active Substance: VINCRISTINE SULFATE
     Dosage: 0.93 MILLIGRAM/SQ. METER
     Route: 042
     Dates: start: 20240424
  42. ONCOVIN [Suspect]
     Active Substance: VINCRISTINE SULFATE
     Dosage: 0.93 MILLIGRAM/SQ. METER
     Route: 042
     Dates: start: 20240424, end: 20240424
  43. ONCOVIN [Suspect]
     Active Substance: VINCRISTINE SULFATE
     Dosage: 0.94 MILLIGRAM/SQ. METER
     Route: 042
     Dates: start: 20240517, end: 20240517
  44. ONCOVIN [Suspect]
     Active Substance: VINCRISTINE SULFATE
     Dosage: 0.94 MILLIGRAM/SQ. METER
     Route: 042
     Dates: start: 20240605, end: 20240605
  45. ONCOVIN [Suspect]
     Active Substance: VINCRISTINE SULFATE
     Dosage: 1.4 MILLIGRAM/SQ. METER
     Route: 065
     Dates: start: 20240626, end: 20240626
  46. ACYCLOVIR [Concomitant]
     Active Substance: ACYCLOVIR
     Indication: Drug toxicity prophylaxis
     Dosage: UNK
     Route: 065
     Dates: start: 20240313
  47. DELTASONE [Concomitant]
     Active Substance: PREDNISONE
     Indication: Hypertension
     Dosage: 100 MILLIGRAM, DAILY
     Route: 048
     Dates: start: 20240321
  48. DELTASONE [Concomitant]
     Active Substance: PREDNISONE
     Indication: Bronchitis
  49. DELTASONE [Concomitant]
     Active Substance: PREDNISONE
     Indication: Sinusitis
  50. FUROSEMIDE [Concomitant]
     Active Substance: FUROSEMIDE
     Indication: Hypertension
     Dosage: 20 MILLIGRAM, DAILY
     Route: 042
     Dates: start: 20240416
  51. FUROSEMIDE [Concomitant]
     Active Substance: FUROSEMIDE
     Indication: Sinusitis
  52. FUROSEMIDE [Concomitant]
     Active Substance: FUROSEMIDE
     Indication: Bronchitis
  53. FOLVITE [Concomitant]
     Active Substance: FOLIC ACID
     Indication: Hypertension
     Dosage: 1 MILLIGRAM, DAILY
     Route: 048
     Dates: start: 20240223
  54. FOLVITE [Concomitant]
     Active Substance: FOLIC ACID
     Indication: Sinusitis
     Dosage: 1 MILLIGRAM, DAILY
     Route: 048
     Dates: start: 20240314
  55. FOLVITE [Concomitant]
     Active Substance: FOLIC ACID
     Indication: Bronchitis
  56. FOLVITE [Concomitant]
     Active Substance: FOLIC ACID
     Indication: Drug toxicity prophylaxis
  57. FEXOFENADINE [Concomitant]
     Active Substance: FEXOFENADINE HYDROCHLORIDE
     Indication: Product used for unknown indication
     Dosage: UNK
     Route: 065
     Dates: start: 20210603
  58. LOSARTAN [Concomitant]
     Active Substance: LOSARTAN\LOSARTAN POTASSIUM
     Indication: Product used for unknown indication
     Dosage: UNK
     Route: 065
     Dates: start: 20191010
  59. VITAMINS [Concomitant]
     Active Substance: VITAMINS
     Indication: Product used for unknown indication
     Dosage: UNK
     Route: 065
     Dates: start: 20240223
  60. ONDANSETRON [Concomitant]
     Active Substance: ONDANSETRON
     Indication: Product used for unknown indication
     Dosage: UNK
     Route: 065
     Dates: start: 20240401
  61. PROTONIX [Concomitant]
     Active Substance: PANTOPRAZOLE SODIUM
     Indication: Epigastric discomfort
     Dosage: 40 MILLIGRAM, DAILY
     Route: 048
     Dates: start: 20240313
  62. PROCHLORPERAZINE [Concomitant]
     Active Substance: PROCHLORPERAZINE
     Indication: Nausea
     Dosage: 10 MILLIGRAM, DAILY
     Route: 048
     Dates: start: 20240401
  63. VITAMIN B12 [Concomitant]
     Active Substance: CYANOCOBALAMIN
     Indication: Organising pneumonia
     Dosage: 1000 MICROGRAM
     Route: 030
     Dates: start: 20240414
  64. XYLOCAINE [Concomitant]
     Active Substance: LIDOCAINE HYDROCHLORIDE
     Indication: Anaesthetic complication
     Dosage: 10 MILLILITER, DAILY
     Dates: start: 20240320
  65. ZYLOPRIM [Concomitant]
     Active Substance: ALLOPURINOL
     Indication: Blood uric acid decreased
     Dosage: 300 MILLIGRAM, DAILY
     Route: 048
     Dates: start: 20240313
  66. ZYLOPRIM [Concomitant]
     Active Substance: ALLOPURINOL
     Dosage: 300 MILLIGRAM, DAILY
     Route: 048
     Dates: start: 20240321

REACTIONS (2)
  - Pneumocystis jirovecii pneumonia [Recovered/Resolved]
  - Upper respiratory tract infection [Recovered/Resolved]

NARRATIVE: CASE EVENT DATE: 20240414
